FAERS Safety Report 6914828-7 (Version None)
Quarter: 2010Q3

REPORT INFORMATION
  Report Type: 
  Country: None (occurrence: None)
  Receive Date: 20100809
  Receipt Date: 20100730
  Transmission Date: 20110219
  Serious: Yes (Hospitalization)
  Sender: FDA-Public Use
  Company Number: GXKR2010AT08635

PATIENT
  Age: 68 Year
  Sex: Female

DRUGS (6)
  1. THIAMAZOLE SANDOZ (NGX) [Suspect]
     Indication: HYPERTHYROIDISM
     Dosage: 1 DF/DAY
     Route: 048
     Dates: start: 20040101
  2. THIAMAZOLE SANDOZ (NGX) [Suspect]
     Dosage: 2 DF/DAY
     Route: 048
  3. THIAMAZOLE SANDOZ (NGX) [Suspect]
     Dosage: 1 DF/DAY
     Route: 048
  4. HYDROCHLOROTHIAZIDE W/VALSARTAN [Concomitant]
     Indication: BLOOD PRESSURE
  5. URSO FALK [Concomitant]
     Dosage: UNK
     Dates: start: 19990101
  6. AMLODIPINE [Concomitant]
     Indication: BLOOD PRESSURE
     Dosage: 0.5 DF, QD
     Route: 048

REACTIONS (1)
  - RETINAL PIGMENT EPITHELIOPATHY [None]
